FAERS Safety Report 14853893 (Version 1)
Quarter: 2018Q2

REPORT INFORMATION
  Report Type: Spontaneous
  Country: US (occurrence: US)
  Receive Date: 20180507
  Receipt Date: 20180507
  Transmission Date: 20180711
  Serious: No
  Sender: FDA-Public Use
  Company Number: US-BAYER-2018-082951

PATIENT
  Age: 32 Year
  Sex: Female

DRUGS (3)
  1. CLARITIN-D 24 HOUR [Suspect]
     Active Substance: LORATADINE\PSEUDOEPHEDRINE SULFATE
     Indication: NASOPHARYNGITIS
     Dosage: 2 DF, UNK
     Route: 048
     Dates: start: 20180425
  2. CLARITIN-D 24 HOUR [Suspect]
     Active Substance: LORATADINE\PSEUDOEPHEDRINE SULFATE
     Indication: MULTIPLE ALLERGIES
  3. CLARITIN-D 24 HOUR [Suspect]
     Active Substance: LORATADINE\PSEUDOEPHEDRINE SULFATE
     Indication: HYPERSENSITIVITY
     Dosage: 1 DF, QD
     Route: 048

REACTIONS (1)
  - Incorrect dose administered [Recovered/Resolved]

NARRATIVE: CASE EVENT DATE: 20180425
